FAERS Safety Report 10606870 (Version 1)
Quarter: 2014Q4

REPORT INFORMATION
  Report Type: Spontaneous
  Country: US (occurrence: None)
  Receive Date: 20141124
  Receipt Date: 20141124
  Transmission Date: 20150529
  Serious: Yes (Hospitalization)
  Sender: FDA-Public Use
  Company Number: None

PATIENT
  Age: 59 Year
  Sex: Female
  Weight: 56.9 kg

DRUGS (2)
  1. CISPLATIN. [Suspect]
     Active Substance: CISPLATIN
  2. ERBITUX [Suspect]
     Active Substance: CETUXIMAB

REACTIONS (6)
  - Nausea [None]
  - Pyloric stenosis [None]
  - Obstruction gastric [None]
  - Vomiting [None]
  - Syncope [None]
  - Peptic ulcer [None]

NARRATIVE: CASE EVENT DATE: 20141006
